FAERS Safety Report 7579826-1 (Version None)
Quarter: 2011Q2

REPORT INFORMATION
  Report Type: 
  Country: None (occurrence: None)
  Receive Date: 20110525
  Receipt Date: 20110228
  Transmission Date: 20111010
  Serious: Yes (Other)
  Sender: FDA-Public Use
  Company Number: 320494

PATIENT
  Age: 69 Year
  Sex: Female
  Weight: 86.2 kg

DRUGS (3)
  1. VICTOZA [Suspect]
     Indication: TYPE 2 DIABETES MELLITUS
     Dosage: 1.2 MG, QD, SUBCUTANEOUS
     Route: 058
     Dates: start: 20101108, end: 20101220
  2. METFORMIN HCL [Concomitant]
  3. GLIPIZIDE [Concomitant]

REACTIONS (3)
  - INJECTION SITE PAIN [None]
  - PANCREATITIS [None]
  - BLOOD GLUCOSE DECREASED [None]
